FAERS Safety Report 7497647-5 (Version None)
Quarter: 2011Q2

REPORT INFORMATION
  Report Type: 
  Country: None (occurrence: None)
  Receive Date: 20110523
  Receipt Date: 20110513
  Transmission Date: 20111010
  Serious: Yes (Other)
  Sender: FDA-Public Use
  Company Number: PHHY2011TR40300

PATIENT
  Age: 68 Year
  Sex: Female

DRUGS (3)
  1. CYCLOPHOSPHAMIDE [Suspect]
     Indication: BREAST CANCER
     Dosage: UNK UKN, UNK
  2. FLUOROURACIL [Suspect]
     Indication: BREAST CANCER
     Dosage: UNK UKN, UNK
  3. ADRIAMYCIN PFS [Suspect]
     Indication: BREAST CANCER
     Dosage: UNK UKN, UNK

REACTIONS (5)
  - PYREXIA [None]
  - RASH ERYTHEMATOUS [None]
  - HERPES ZOSTER [None]
  - PAIN OF SKIN [None]
  - FEBRILE NEUTROPENIA [None]
